FAERS Safety Report 14535259 (Version 1)
Quarter: 2018Q1

REPORT INFORMATION
  Report Type: Spontaneous
  Country: US (occurrence: US)
  Receive Date: 20180215
  Receipt Date: 20180215
  Transmission Date: 20180509
  Serious: Yes (Other)
  Sender: FDA-Public Use
  Company Number: US-PFIZER INC-2018064034

PATIENT
  Sex: Male

DRUGS (1)
  1. XELJANZ [Suspect]
     Active Substance: TOFACITINIB CITRATE
     Indication: ANDROGENETIC ALOPECIA
     Dosage: UNK

REACTIONS (3)
  - Blindness transient [Unknown]
  - Product use in unapproved indication [Unknown]
  - Thrombosis [Unknown]

NARRATIVE: CASE EVENT DATE: 20180208
